FAERS Safety Report 22147959 (Version 1)
Quarter: 2023Q1

REPORT INFORMATION
  Report Type: Spontaneous
  Country: DE (occurrence: DE)
  Receive Date: 20230328
  Receipt Date: 20230328
  Transmission Date: 20230418
  Serious: Yes (Hospitalization, Other)
  Sender: FDA-Public Use
  Company Number: DE-NAPPMUNDI-GBR-2023-0106161

PATIENT
  Sex: Female

DRUGS (4)
  1. OXYCODONE [Suspect]
     Active Substance: OXYCODONE
     Indication: Product used for unknown indication
     Dosage: UNK
     Route: 048
     Dates: start: 1999
  2. MORPHINE [Concomitant]
     Active Substance: MORPHINE
     Indication: Product used for unknown indication
     Dosage: UNK
     Dates: start: 1995
  3. Mst [Concomitant]
     Indication: Product used for unknown indication
     Dosage: 500 MILLIGRAM, DAILY
     Dates: start: 199508
  4. Mst [Concomitant]
     Dosage: 260 MILLIGRAM, DAILY

REACTIONS (2)
  - Near death experience [Unknown]
  - Adverse event [Unknown]

NARRATIVE: CASE EVENT DATE: 19990101
